FAERS Safety Report 25488509 (Version 1)
Quarter: 2025Q2

REPORT INFORMATION
  Report Type: Spontaneous
  Country: AU (occurrence: AU)
  Receive Date: 20250627
  Receipt Date: 20250627
  Transmission Date: 20250717
  Serious: Yes (Other)
  Sender: ORGANON
  Company Number: AU-SUN PHARMACEUTICAL INDUSTRIES LTD-2025RR-507810

PATIENT
  Age: 5 Decade
  Sex: Female

DRUGS (21)
  1. MIRTAZAPINE [Suspect]
     Active Substance: MIRTAZAPINE
     Indication: Persistent postural-perceptual dizziness
     Route: 065
  2. MIRTAZAPINE [Suspect]
     Active Substance: MIRTAZAPINE
     Indication: Depression
  3. AGOMELATINE [Suspect]
     Active Substance: AGOMELATINE
     Indication: Persistent postural-perceptual dizziness
     Route: 065
  4. AGOMELATINE [Suspect]
     Active Substance: AGOMELATINE
     Indication: Depression
  5. BETAHISTINE [Suspect]
     Active Substance: BETAHISTINE
     Indication: Persistent postural-perceptual dizziness
     Route: 065
  6. BETAHISTINE [Suspect]
     Active Substance: BETAHISTINE
     Indication: Depression
  7. DESVENLAFAXINE [Suspect]
     Active Substance: DESVENLAFAXINE
     Indication: Persistent postural-perceptual dizziness
     Route: 065
  8. DESVENLAFAXINE [Suspect]
     Active Substance: DESVENLAFAXINE
     Indication: Depression
  9. ESCITALOPRAM OXALATE [Suspect]
     Active Substance: ESCITALOPRAM OXALATE
     Indication: Depression
     Route: 065
  10. ESCITALOPRAM OXALATE [Suspect]
     Active Substance: ESCITALOPRAM OXALATE
     Indication: Persistent postural-perceptual dizziness
  11. OLANZAPINE [Suspect]
     Active Substance: OLANZAPINE
     Indication: Anxiety
  12. OLANZAPINE [Suspect]
     Active Substance: OLANZAPINE
     Indication: Sleep disorder
     Dosage: 5 MILLIGRAM, Q12H
     Route: 065
  13. SERTRALINE HYDROCHLORIDE [Suspect]
     Active Substance: SERTRALINE HYDROCHLORIDE
     Indication: Depression
     Route: 065
  14. SERTRALINE HYDROCHLORIDE [Suspect]
     Active Substance: SERTRALINE HYDROCHLORIDE
     Indication: Persistent postural-perceptual dizziness
  15. SUMATRIPTAN SUCCINATE [Suspect]
     Active Substance: SUMATRIPTAN SUCCINATE
     Indication: Depression
     Route: 065
  16. SUMATRIPTAN SUCCINATE [Suspect]
     Active Substance: SUMATRIPTAN SUCCINATE
     Indication: Persistent postural-perceptual dizziness
  17. TEMAZEPAM [Suspect]
     Active Substance: TEMAZEPAM
     Indication: Sleep disorder
     Dosage: 10 MILLIGRAM, NIGHTTIME (QD)
     Route: 065
  18. VENLAFAXINE HYDROCHLORIDE [Suspect]
     Active Substance: VENLAFAXINE HYDROCHLORIDE
     Indication: Depression
     Dosage: 150 MILLIGRAM, IN THE MORNING (QD)
  19. VENLAFAXINE HYDROCHLORIDE [Suspect]
     Active Substance: VENLAFAXINE HYDROCHLORIDE
     Indication: Persistent postural-perceptual dizziness
  20. MELATONIN [Suspect]
     Active Substance: MELATONIN
     Indication: Sleep disorder
     Dosage: 7 MILLIGRAM, NIGHTTIME (QD)
  21. PROPRANOLOL [Suspect]
     Active Substance: PROPRANOLOL HYDROCHLORIDE
     Indication: Anxiety
     Dosage: 5 MILLIGRAM, BID
     Route: 065

REACTIONS (3)
  - Drug ineffective for unapproved indication [Unknown]
  - Exposure during pregnancy [Unknown]
  - Off label use [Unknown]
